FAERS Safety Report 5371469-3 (Version None)
Quarter: 2007Q2

REPORT INFORMATION
  Report Type: 
  Country: None (occurrence: None)
  Receive Date: 20070615
  Receipt Date: 20061109
  Transmission Date: 20071010
  Serious: Yes (Other)
  Sender: FDA-Public Use
  Company Number: 200614773US

PATIENT
  Age: 67 Year
  Sex: Female
  Weight: 48 kg

DRUGS (5)
  1. LANTUS [Suspect]
     Indication: DIABETES MELLITUS INSULIN-DEPENDENT
     Dosage: 14 U QD
     Dates: start: 20060401
  2. INSULIN HUMAN (HUMULIN R) [Concomitant]
  3. FOSINOPRIL SODIUM [Concomitant]
  4. FOSAMAX [Concomitant]
  5. RALOXIFENE HCL [Concomitant]

REACTIONS (5)
  - BLOOD GLUCOSE INCREASED [None]
  - DIABETES MELLITUS INADEQUATE CONTROL [None]
  - FEAR OF FALLING [None]
  - HYPOGLYCAEMIA [None]
  - WEIGHT DECREASED [None]
